FAERS Safety Report 9824967 (Version 1)
Quarter: 2014Q1

REPORT INFORMATION
  Report Type: Spontaneous
  Country: US (occurrence: US)
  Receive Date: 20140117
  Receipt Date: 20140117
  Transmission Date: 20141002
  Serious: Yes (Death)
  Sender: FDA-Public Use
  Company Number: US-JNJFOC-20140107107

PATIENT
  Age: 46 Year
  Sex: Male

DRUGS (12)
  1. FAMOTIDINE [Suspect]
     Route: 048
  2. FAMOTIDINE [Suspect]
     Indication: SUICIDE ATTEMPT
     Route: 048
  3. AMLODIPINE [Suspect]
     Indication: SUICIDE ATTEMPT
     Route: 048
  4. METOPROLOL [Suspect]
     Indication: SUICIDE ATTEMPT
     Route: 048
  5. METFORMIN [Suspect]
     Indication: SUICIDE ATTEMPT
     Route: 048
  6. CARISOPRODOL [Suspect]
     Indication: SUICIDE ATTEMPT
     Route: 048
  7. ALPRAZOLAM [Suspect]
     Indication: SUICIDE ATTEMPT
     Route: 048
  8. HYDROCODONE [Suspect]
     Indication: SUICIDE ATTEMPT
     Route: 048
  9. GLYBURIDE [Suspect]
     Indication: SUICIDE ATTEMPT
     Route: 048
  10. GEMFIBROZIL [Suspect]
     Indication: SUICIDE ATTEMPT
     Route: 048
  11. PRAVASTATIN [Suspect]
     Indication: SUICIDE ATTEMPT
     Route: 048
  12. ALLOPURINOL [Suspect]
     Indication: SUICIDE ATTEMPT
     Route: 048

REACTIONS (1)
  - Toxicity to various agents [Fatal]
